FAERS Safety Report 6375108-4 (Version None)
Quarter: 2009Q3

REPORT INFORMATION
  Report Type: 
  Country: None (occurrence: None)
  Receive Date: 20090917
  Receipt Date: 20090917
  Transmission Date: 20100115
  Serious: Yes (Life-Threatening, Hospitalization)
  Sender: FDA-Public Use
  Company Number: None

PATIENT
  Age: 55 Year
  Sex: Male
  Weight: 125.2 kg

DRUGS (3)
  1. SIMVASTATIN [Suspect]
     Indication: CORONARY ARTERY DISEASE
     Dosage: 80 MG ONCE DAILY PO
     Route: 048
     Dates: start: 20061103, end: 20090406
  2. SIMVASTATIN [Suspect]
     Indication: HYPERLIPIDAEMIA
     Dosage: 80 MG ONCE DAILY PO
     Route: 048
     Dates: start: 20061103, end: 20090406
  3. AMIODARONE HCL [Suspect]
     Indication: ATRIAL FIBRILLATION
     Dosage: 200 MG ONCE DAILY PO
     Route: 048
     Dates: start: 20090217, end: 20090406

REACTIONS (7)
  - ANURIA [None]
  - ATRIAL FIBRILLATION [None]
  - DIALYSIS [None]
  - FALL [None]
  - HYPOTENSION [None]
  - PNEUMONIA [None]
  - RHABDOMYOLYSIS [None]
